FAERS Safety Report 8471748-7 (Version None)
Quarter: 2012Q2

REPORT INFORMATION
  Report Type: 
  Country: None (occurrence: None)
  Receive Date: 20120627
  Receipt Date: 20120615
  Transmission Date: 20120825
  Serious: Yes (Death, Hospitalization, Other)
  Sender: FDA-Public Use
  Company Number: JP-ROCHE-1026189

PATIENT
  Sex: Female
  Weight: 56 kg

DRUGS (8)
  1. ZANTAC [Concomitant]
     Route: 041
     Dates: start: 20110920, end: 20111101
  2. DECADRON [Concomitant]
     Route: 041
     Dates: start: 20110920, end: 20111101
  3. FLUOROURACIL [Concomitant]
     Indication: COLON CANCER METASTATIC
     Route: 040
     Dates: start: 20110920, end: 20111101
  4. OXALIPLATIN [Concomitant]
     Indication: COLON CANCER METASTATIC
     Route: 041
     Dates: start: 20110920, end: 20111101
  5. ISOVORIN [Concomitant]
     Indication: COLON CANCER METASTATIC
     Route: 041
     Dates: start: 20110920, end: 20111101
  6. AVASTIN [Suspect]
     Indication: COLON CANCER METASTATIC
     Route: 041
     Dates: start: 20111004, end: 20111101
  7. FLUOROURACIL [Concomitant]
     Route: 041
     Dates: start: 20110920, end: 20111101
  8. KYTRIL [Concomitant]
     Route: 041
     Dates: start: 20110920, end: 20111101

REACTIONS (6)
  - SEPTIC SHOCK [None]
  - SEPSIS [None]
  - PNEUMONIA [None]
  - PANCYTOPENIA [None]
  - GASTROINTESTINAL PERFORATION [None]
  - DISSEMINATED INTRAVASCULAR COAGULATION [None]
